FAERS Safety Report 21626274 (Version 1)
Quarter: 2022Q4

REPORT INFORMATION
  Report Type: Spontaneous
  Country: US (occurrence: None)
  Receive Date: 20221122
  Receipt Date: 20221122
  Transmission Date: 20230113
  Serious: No
  Sender: FDA-Public Use
  Company Number: US-ROCHE-2998668

PATIENT
  Sex: Female
  Weight: 49.940 kg

DRUGS (17)
  1. LUCENTIS [Suspect]
     Active Substance: RANIBIZUMAB
     Indication: Neovascular age-related macular degeneration
     Dosage: NO
     Route: 065
     Dates: start: 2014
  2. PROLIA [Concomitant]
     Active Substance: DENOSUMAB
     Indication: Osteoporosis
     Dosage: YES
     Dates: start: 2012
  3. LEVOTHYROXINE [Concomitant]
     Active Substance: LEVOTHYROXINE
     Dosage: YES
     Route: 048
     Dates: start: 2002
  4. METFORMIN [Concomitant]
     Active Substance: METFORMIN HYDROCHLORIDE
     Indication: Diabetes mellitus
     Dosage: TAKES TWICE A DAY ;ONGOING: YES
     Route: 048
     Dates: start: 2002
  5. SIMVASTATIN [Concomitant]
     Active Substance: SIMVASTATIN
     Dosage: YES
     Route: 048
     Dates: start: 2017
  6. XYZAL [Concomitant]
     Active Substance: LEVOCETIRIZINE DIHYDROCHLORIDE
     Indication: Rash
     Dosage: TAKES MORNING AND NIGHT ;ONGOING: YES
     Route: 048
     Dates: start: 202110
  7. XYZAL [Concomitant]
     Active Substance: LEVOCETIRIZINE DIHYDROCHLORIDE
     Dosage: TOOK AT NIGHT (ALONG WITH A MORNING ALLEGRA DOSE) ;ONGOING: NO
     Route: 048
     Dates: start: 20211019, end: 202110
  8. ALLEGRA [Concomitant]
     Active Substance: FEXOFENADINE HYDROCHLORIDE
     Indication: Rash
     Dosage: TOOK IN THE MORNING (ALONG WITH AN EVENING XYZAL DOSE) ;ONGOING: NO
     Route: 048
     Dates: start: 20211019, end: 202110
  9. METHYLPREDNISOLONE [Concomitant]
     Active Substance: METHYLPREDNISOLONE
     Indication: Rash
     Dosage: TOOK PACK FOR 6 DAYS ;ONGOING: NO
     Route: 048
     Dates: start: 20211019, end: 20211025
  10. TRIAMCINOLONE [Concomitant]
     Active Substance: TRIAMCINOLONE
     Indication: Rash pruritic
     Dosage: YES
     Route: 061
  11. UNSPECIFIED INGREDIENT [Concomitant]
     Active Substance: UNSPECIFIED INGREDIENT
     Indication: Rash pruritic
     Dosage: YES
     Route: 061
  12. VITAMIN B12 [Concomitant]
     Active Substance: CYANOCOBALAMIN
     Indication: Anaemia
  13. VITAMIN B6 [Concomitant]
     Active Substance: PYRIDOXINE HYDROCHLORIDE
     Indication: Anaemia
  14. VYTORIN [Concomitant]
     Active Substance: EZETIMIBE\SIMVASTATIN
  15. EYLEA [Concomitant]
     Active Substance: AFLIBERCEPT
     Indication: Neovascular age-related macular degeneration
     Dosage: YES
     Route: 050
     Dates: start: 2015
  16. OATMEAL [Concomitant]
     Active Substance: OATMEAL
     Indication: Rash pruritic
  17. PROBIOTIC (UNK INGREDIENTS) [Concomitant]
     Indication: Abdominal pain upper
     Dates: start: 202110

REACTIONS (7)
  - Urticaria [Not Recovered/Not Resolved]
  - Abdominal pain [Recovered/Resolved]
  - Diarrhoea [Recovered/Resolved]
  - Eye pain [Not Recovered/Not Resolved]
  - Anaemia [Unknown]
  - Weight decreased [Not Recovered/Not Resolved]
  - Unevaluable event [Not Recovered/Not Resolved]

NARRATIVE: CASE EVENT DATE: 20210101
